FAERS Safety Report 9601867 (Version 2)
Quarter: 2013Q4

REPORT INFORMATION
  Report Type: Spontaneous
  Country: JP (occurrence: JP)
  Receive Date: 20131007
  Receipt Date: 20131101
  Transmission Date: 20140711
  Serious: No
  Sender: FDA-Public Use
  Company Number: JP-JNJFOC-20131001333

PATIENT
  Age: 9 Decade
  Sex: Male

DRUGS (2)
  1. DUROTEP MT [Suspect]
     Indication: PRODUCT USED FOR UNKNOWN INDICATION
     Route: 062
  2. DUROTEP MT [Suspect]
     Indication: PRODUCT USED FOR UNKNOWN INDICATION
     Route: 062

REACTIONS (3)
  - Drug prescribing error [Unknown]
  - Wrong technique in drug usage process [Unknown]
  - Drug ineffective [Unknown]
